FAERS Safety Report 6862004-9 (Version None)
Quarter: 2010Q3

REPORT INFORMATION
  Report Type: 
  Country: None (occurrence: None)
  Receive Date: 20100720
  Receipt Date: 20100720
  Transmission Date: 20110219
  Serious: Yes (Other)
  Sender: FDA-Public Use
  Company Number: None

PATIENT
  Sex: Female
  Weight: 63.05 kg

DRUGS (1)
  1. ZESTRIL [Suspect]
     Indication: DRUG HYPERSENSITIVITY
     Dates: end: 20100701

REACTIONS (1)
  - DRUG HYPERSENSITIVITY [None]
